FAERS Safety Report 9620246 (Version 1)
Quarter: 2013Q4

REPORT INFORMATION
  Report Type: Spontaneous
  Country: US (occurrence: US)
  Receive Date: 20131014
  Receipt Date: 20131014
  Transmission Date: 20140711
  Serious: No
  Sender: FDA-Public Use
  Company Number: US-ALLERGAN-1310235US

PATIENT
  Age: 78 Year
  Sex: Female

DRUGS (5)
  1. ALPHAGAN P [Suspect]
     Indication: PRODUCT USED FOR UNKNOWN INDICATION
     Dosage: 2 GTT, BID
     Route: 047
     Dates: start: 20130626
  2. REFRESH OPTIVE [Concomitant]
     Indication: DRY EYE
  3. REFRESH GEL NOS [Concomitant]
     Indication: DRY EYE
  4. PRAVASTATIN [Concomitant]
     Indication: BLOOD CHOLESTEROL INCREASED
     Dosage: 10 MG, UNK
     Route: 048
  5. ATENOLOL [Concomitant]
     Indication: EXTRASYSTOLES
     Dosage: 37.5 MG, BID
     Route: 048

REACTIONS (7)
  - Gait disturbance [Recovering/Resolving]
  - Dehydration [Recovering/Resolving]
  - Blood pressure decreased [Unknown]
  - Blood pressure increased [Unknown]
  - Expired drug administered [Unknown]
  - Inappropriate schedule of drug administration [Unknown]
  - Dizziness [Unknown]
